FAERS Safety Report 25176475 (Version 1)
Quarter: 2025Q2

REPORT INFORMATION
  Report Type: Spontaneous
  Country: CN (occurrence: CN)
  Receive Date: 20250409
  Receipt Date: 20250409
  Transmission Date: 20250716
  Serious: Yes (Hospitalization)
  Sender: GE HEALTHCARE
  Company Number: CN-GE HEALTHCARE-2025CSU004152

PATIENT
  Age: 28 Year
  Sex: Male

DRUGS (1)
  1. OMNIPAQUE [Suspect]
     Active Substance: IOHEXOL
     Indication: Computerised tomogram abdomen
     Route: 013
     Dates: start: 20250325

REACTIONS (3)
  - Ecchymosis [Recovering/Resolving]
  - Skin oedema [Recovering/Resolving]
  - Injection site pain [Recovering/Resolving]

NARRATIVE: CASE EVENT DATE: 20250325
